FAERS Safety Report 8003375-X (Version None)
Quarter: 2011Q4

REPORT INFORMATION
  Report Type: 
  Country: None (occurrence: None)
  Receive Date: 20111222
  Receipt Date: 20111012
  Transmission Date: 20120403
  Serious: Yes (Other)
  Sender: FDA-Public Use
  Company Number: JP-JNJFOC-20111209601

PATIENT
  Age: 60 Year
  Sex: Male

DRUGS (4)
  1. REMICADE [Suspect]
     Indication: PSORIASIS
     Route: 042
  2. METHOTREXATE [Concomitant]
     Indication: PSORIASIS
     Route: 048
  3. REMICADE [Suspect]
     Route: 042
     Dates: start: 20100415
  4. ETRETINATE [Concomitant]
     Indication: PSORIASIS
     Route: 065
     Dates: start: 20090801

REACTIONS (1)
  - SKIN EXFOLIATION [None]
